FAERS Safety Report 6453607-4 (Version None)
Quarter: 2009Q4

REPORT INFORMATION
  Report Type: 
  Country: None (occurrence: None)
  Receive Date: 20091124
  Receipt Date: 20091110
  Transmission Date: 20100525
  Serious: Yes (Life-Threatening, Hospitalization, Other)
  Sender: FDA-Public Use
  Company Number: PHHY2009CA49544

PATIENT
  Sex: Female

DRUGS (3)
  1. DIOVAN [Suspect]
     Dosage: 160 MG (FIVE OUT OF SEVEN DAYS)
     Route: 048
  2. DIOVAN [Suspect]
     Dosage: 80 MG PER DAY
     Route: 048
  3. DIOVAN HCT [Suspect]
     Dosage: 160/25 MG (TWO DAYS OUT OF SEVEN)

REACTIONS (8)
  - ADENOCARCINOMA [None]
  - BLADDER SPASM [None]
  - BLOOD PRESSURE FLUCTUATION [None]
  - DIARRHOEA [None]
  - DYSURIA [None]
  - METASTASIS [None]
  - PAINFUL DEFAECATION [None]
  - RECTAL CANCER [None]
